FAERS Safety Report 7439981-0 (Version None)
Quarter: 2011Q2

REPORT INFORMATION
  Report Type: 
  Country: None (occurrence: None)
  Receive Date: 20110427
  Receipt Date: 20110418
  Transmission Date: 20111010
  Serious: Yes (Other)
  Sender: FDA-Public Use
  Company Number: PHHY2011US27652

PATIENT
  Sex: Male
  Weight: 81.633 kg

DRUGS (6)
  1. ABILIFY [Concomitant]
     Indication: AFFECTIVE DISORDER
     Dosage: 15 MG, QD (EVERY MORNING)
     Route: 048
     Dates: start: 20100812
  2. ATIVAN [Concomitant]
     Indication: AGITATION
  3. ATIVAN [Concomitant]
     Indication: ANXIETY
     Dosage: 10 MG, 2Q24
     Route: 048
     Dates: start: 20110110
  4. TRAZONE [Concomitant]
     Indication: INSOMNIA
     Dosage: 50 MG, QHS
     Route: 048
     Dates: start: 20110110
  5. FANAPT [Suspect]
     Indication: PSYCHOTIC DISORDER
     Dosage: UNK UKN, UNK
     Route: 048
     Dates: start: 20110221, end: 20110406
  6. AMBIEN [Concomitant]
     Indication: INSOMNIA
     Dosage: 1 MG, PRN (AT NIGHT)
     Dates: start: 20110110

REACTIONS (1)
  - RETROGRADE EJACULATION [None]
